FAERS Safety Report 22647842 (Version 1)
Quarter: 2023Q2

REPORT INFORMATION
  Report Type: Spontaneous
  Country: DK (occurrence: DK)
  Receive Date: 20230628
  Receipt Date: 20230628
  Transmission Date: 20230722
  Serious: Yes (Hospitalization)
  Sender: FDA-Public Use
  Company Number: None

PATIENT
  Age: 22 Year
  Sex: Male
  Weight: 75 kg

DRUGS (3)
  1. ASACOL [Suspect]
     Active Substance: MESALAMINE
     Indication: Colitis ulcerative
     Dosage: STRENGTH: 800 MG
     Route: 048
     Dates: start: 20230523, end: 20230619
  2. PENTASA [Suspect]
     Active Substance: MESALAMINE
     Indication: Colitis ulcerative
     Dosage: STRENGTH: 1 G
     Route: 054
     Dates: start: 20230523, end: 20230619
  3. ASACOL [Suspect]
     Active Substance: MESALAMINE
     Indication: Colitis ulcerative
     Dosage: STRENGTH: 1 G
     Route: 054
     Dates: start: 20230523, end: 20230619

REACTIONS (3)
  - Chest discomfort [Unknown]
  - Chest pain [Unknown]
  - Myopericarditis [Recovering/Resolving]

NARRATIVE: CASE EVENT DATE: 20230601
